FAERS Safety Report 20329830 (Version 1)
Quarter: 2022Q1

REPORT INFORMATION
  Report Type: Spontaneous
  Country: US (occurrence: US)
  Receive Date: 20220112
  Receipt Date: 20220112
  Transmission Date: 20220423
  Serious: No
  Sender: FDA-Public Use
  Company Number: US-ELI_LILLY_AND_COMPANY-US202112010666

PATIENT
  Sex: Female

DRUGS (6)
  1. HUMALOG [Interacting]
     Active Substance: INSULIN LISPRO
     Indication: Type 1 diabetes mellitus
     Dosage: 200 U, UNKNOWN
     Route: 058
  2. HUMALOG [Interacting]
     Active Substance: INSULIN LISPRO
     Dosage: 200 U, UNKNOWN
     Route: 058
  3. CYMBALTA [Suspect]
     Active Substance: DULOXETINE HYDROCHLORIDE
     Indication: Major depression
     Dosage: 90 MG, DAILY
     Route: 048
  4. PREDNISONE [Interacting]
     Active Substance: PREDNISONE
     Indication: Bronchitis
     Dosage: 40 MG, DAILY
     Route: 065
  5. OZEMPIC [Concomitant]
     Active Substance: SEMAGLUTIDE
     Indication: Type 1 diabetes mellitus
     Dosage: 2.5 MG, UNKNOWN
     Route: 065
  6. NOVOLOG [Concomitant]
     Active Substance: INSULIN ASPART
     Indication: Type 1 diabetes mellitus

REACTIONS (3)
  - Feeling abnormal [Unknown]
  - Drug interaction [Unknown]
  - Bronchitis [Not Recovered/Not Resolved]
